FAERS Safety Report 17278414 (Version 1)
Quarter: 2020Q1

REPORT INFORMATION
  Report Type: Spontaneous
  Country: GB (occurrence: GB)
  Receive Date: 20200116
  Receipt Date: 20200116
  Transmission Date: 20200409
  Serious: Yes (Other)
  Sender: FDA-Public Use
  Company Number: GB-MYLANLABS-2020M1004556

PATIENT
  Age: 53 Year
  Sex: Female

DRUGS (1)
  1. ZUMENON? 1MG FILM-COATED TABLETS [Suspect]
     Active Substance: ESTRADIOL
     Indication: HORMONE REPLACEMENT THERAPY
     Dosage: 1 MILLIGRAM, QD
     Route: 048

REACTIONS (4)
  - Throat tightness [Unknown]
  - Choking [Unknown]
  - Dyspepsia [Unknown]
  - Fungal infection [Unknown]
